FAERS Safety Report 20078300 (Version 1)
Quarter: 2021Q4

REPORT INFORMATION
  Report Type: Spontaneous
  Country: FR (occurrence: FR)
  Receive Date: 20211117
  Receipt Date: 20211117
  Transmission Date: 20220303
  Serious: Yes (Other)
  Sender: FDA-Public Use
  Company Number: FR-ABBVIE-21K-056-4164270-00

PATIENT
  Age: 27 Year
  Sex: Female
  Weight: 45 kg

DRUGS (5)
  1. VALPROATE SODIUM [Suspect]
     Active Substance: VALPROATE SODIUM
     Indication: Epilepsy
     Route: 048
  2. CLOBAZAM [Suspect]
     Active Substance: CLOBAZAM
     Indication: Medication error
     Route: 048
     Dates: start: 20200120, end: 20200120
  3. LACOSAMIDE [Suspect]
     Active Substance: LACOSAMIDE
     Indication: Medication error
     Route: 048
     Dates: start: 20200120, end: 20200120
  4. LAMOTRIGINE [Suspect]
     Active Substance: LAMOTRIGINE
     Indication: Epilepsy
     Route: 048
  5. FYCOMPA [Suspect]
     Active Substance: PERAMPANEL
     Indication: Medication error
     Route: 048
     Dates: start: 20200120, end: 20200120

REACTIONS (3)
  - Depressed level of consciousness [Recovered/Resolved]
  - Wrong schedule [Unknown]
  - Somnolence [Not Recovered/Not Resolved]

NARRATIVE: CASE EVENT DATE: 20200120
